FAERS Safety Report 17438673 (Version 1)
Quarter: 2020Q1

REPORT INFORMATION
  Report Type: Spontaneous
  Country: US (occurrence: US)
  Receive Date: 20200220
  Receipt Date: 20200220
  Transmission Date: 20200409
  Serious: Yes (Other)
  Sender: FDA-Public Use
  Company Number: US-BRISTOL-MYERS SQUIBB COMPANY-BMS-2020-012516

PATIENT
  Sex: Male
  Weight: 93.42 kg

DRUGS (2)
  1. SPRYCEL [Suspect]
     Active Substance: DASATINIB
     Indication: CHRONIC MYELOID LEUKAEMIA
     Dosage: 70 MILLIGRAM, QD
     Route: 048
  2. SPRYCEL [Suspect]
     Active Substance: DASATINIB
     Indication: PRODUCT USED FOR UNKNOWN INDICATION
     Dosage: 50 MILLIGRAM
     Route: 048

REACTIONS (8)
  - Fatigue [Unknown]
  - Vomiting [Unknown]
  - Sinus headache [Unknown]
  - Meningitis [Unknown]
  - Irritability [Unknown]
  - Rash [Unknown]
  - Skin burning sensation [Unknown]
  - Off label use [Unknown]
